FAERS Safety Report 6891265-5 (Version None)
Quarter: 2010Q3

REPORT INFORMATION
  Report Type: 
  Country: None (occurrence: None)
  Receive Date: 20100731
  Receipt Date: 20090710
  Transmission Date: 20110219
  Serious: No
  Sender: FDA-Public Use
  Company Number: US-PFIZER INC-2009240040

PATIENT
  Sex: Female
  Weight: 61.678 kg

DRUGS (7)
  1. LIPITOR [Suspect]
     Indication: BLOOD CHOLESTEROL INCREASED
     Dosage: 10 MG, 1X/DAY
     Dates: start: 20050101
  2. LEVOXYL [Concomitant]
     Dosage: UNK
  3. TOPROL-XL [Concomitant]
     Dosage: UNK
  4. FUROSEMIDE [Concomitant]
     Dosage: UNK
  5. EVISTA [Concomitant]
     Dosage: UNK
  6. FOSAMAX [Concomitant]
     Dosage: UNK
  7. IBUPROFEN [Concomitant]
     Dosage: UNK

REACTIONS (2)
  - BODY HEIGHT DECREASED [None]
  - MUSCLE SPASMS [None]
